FAERS Safety Report 6967320 (Version 2)
Quarter: 2014Q2

REPORT INFORMATION
  Report Type: Spontaneous
  Country: FR (occurrence: FR)
  Receive Date: 20090413
  Receipt Date: 20140508
  Transmission Date: 20141212
  Serious: Yes (Life-Threatening, Hospitalization, Other)
  Sender: FDA-Public Use
  Company Number: PHHY2009FR13138

PATIENT
  Sex: Female
  Weight: 128 kg

DRUGS (9)
  1. FORADIL [Suspect]
     Dosage: UNK UKN, UNK
     Route: 048
  2. PAROXETINE [Suspect]
     Indication: DEPRESSION
     Dosage: UNK UKN, UNK
     Dates: start: 2005, end: 2007
  3. LEVOTHYROXINE [Suspect]
     Dosage: UNK UKN, UNK
  4. MEDIATOR [Suspect]
     Indication: DIABETES MELLITUS
     Dosage: 3 DF, UNK
     Dates: start: 200306, end: 2006
  5. TRIATEC [Suspect]
     Indication: CARDIAC FAILURE
     Dosage: UNK UKN, UNK
  6. LASILIX [Suspect]
     Dosage: UNK UKN, UNK
  7. XANAX [Suspect]
     Dosage: UNK UKN, UNK
  8. DI-ANTALVIC [Suspect]
     Dosage: UNK UKN, UNK
  9. DIFFU K [Suspect]
     Dosage: UNK UKN, UNK

REACTIONS (11)
  - Pulmonary arterial hypertension [Not Recovered/Not Resolved]
  - Mitral valve incompetence [Not Recovered/Not Resolved]
  - Cardiac murmur [Not Recovered/Not Resolved]
  - Ejection fraction decreased [Not Recovered/Not Resolved]
  - Ventricular hypokinesia [Not Recovered/Not Resolved]
  - Dyspnoea exertional [Not Recovered/Not Resolved]
  - Rotator cuff syndrome [Not Recovered/Not Resolved]
  - Diabetes mellitus [Not Recovered/Not Resolved]
  - Tricuspid valve incompetence [Not Recovered/Not Resolved]
  - Bronchitis [Not Recovered/Not Resolved]
  - Depression [Not Recovered/Not Resolved]
